FAERS Safety Report 11440159 (Version 3)
Quarter: 2015Q3

REPORT INFORMATION
  Report Type: Spontaneous
  Country: JP (occurrence: JP)
  Receive Date: 20150901
  Receipt Date: 20150922
  Transmission Date: 20151125
  Serious: Yes (Death, Other)
  Sender: FDA-Public Use
  Company Number: JP-CELGENE-JPN-2015084188

PATIENT
  Age: 68 Year
  Sex: Male
  Weight: 50 kg

DRUGS (9)
  1. TAKEPRON [Concomitant]
     Active Substance: LANSOPRAZOLE
     Indication: GASTROOESOPHAGEAL REFLUX DISEASE
     Dosage: 1400 MILLIGRAM
     Route: 048
     Dates: start: 20130724, end: 20150709
  2. FERROMIA [Concomitant]
     Active Substance: FERROUS CITRATE
     Indication: IRON DEFICIENCY ANAEMIA
     Route: 048
     Dates: start: 20150318, end: 20150709
  3. LIPACREON [Concomitant]
     Active Substance: PANCRELIPASE
     Indication: PANCREATIC INSUFFICIENCY
     Route: 048
     Dates: start: 20130724, end: 20150709
  4. CRAVIT [Concomitant]
     Active Substance: LEVOFLOXACIN
     Indication: CHOLANGITIS
     Route: 048
     Dates: start: 20130724, end: 20150709
  5. REBAMIPIDE [Concomitant]
     Active Substance: REBAMIPIDE
     Indication: BACK PAIN
     Route: 048
     Dates: start: 20150415, end: 20150709
  6. GEMZAR [Suspect]
     Active Substance: GEMCITABINE HYDROCHLORIDE
     Indication: PANCREATIC CARCINOMA METASTATIC
     Route: 041
     Dates: start: 20150422, end: 20150701
  7. LOXOPROFEN SODIUM HYDRATE [Concomitant]
     Active Substance: LOXOPROFEN SODIUM DIHYDRATE
     Indication: BACK PAIN
     Route: 048
     Dates: start: 20150415, end: 20150709
  8. REBAMIPIDE [Concomitant]
     Active Substance: REBAMIPIDE
     Indication: PROPHYLAXIS AGAINST GASTROINTESTINAL ULCER
  9. ABRAXANE [Suspect]
     Active Substance: PACLITAXEL
     Indication: PANCREATIC CARCINOMA METASTATIC
     Dosage: 180 MILLIGRAM
     Route: 041
     Dates: start: 20150422, end: 20150701

REACTIONS (5)
  - Septic shock [Fatal]
  - Bone marrow failure [Unknown]
  - Alopecia [Unknown]
  - Disseminated intravascular coagulation [Fatal]
  - Liver abscess [Fatal]

NARRATIVE: CASE EVENT DATE: 20150709
